FAERS Safety Report 9735080 (Version 1)
Quarter: 2013Q4

REPORT INFORMATION
  Report Type: Spontaneous
  Country: SE (occurrence: None)
  Receive Date: 20131204
  Receipt Date: 20131204
  Transmission Date: 20140711
  Serious: Yes (Hospitalization)
  Sender: FDA-Public Use
  Company Number: FK201305091

PATIENT
  Age: 29 Year
  Sex: Male

DRUGS (1)
  1. CAFFEINE CITRATE [Suspect]
     Indication: PRODUCT USED FOR UNKNOWN INDICATION
     Dosage: TOTAL OF 21G
     Route: 048

REACTIONS (10)
  - Hypokalaemia [None]
  - Hyperglycaemia [None]
  - Leukocytosis [None]
  - Overdose [None]
  - Suicide attempt [None]
  - Vomiting [None]
  - Ketoacidosis [None]
  - Blood lactic acid increased [None]
  - Lactic acidosis [None]
  - Urine ketone body present [None]
